FAERS Safety Report 6652728-0 (Version None)
Quarter: 2010Q1

REPORT INFORMATION
  Report Type: 
  Country: None (occurrence: None)
  Receive Date: 20100326
  Receipt Date: 20100316
  Transmission Date: 20100710
  Serious: Yes (Hospitalization)
  Sender: FDA-Public Use
  Company Number: CA-JNJFOC-20100304950

PATIENT
  Sex: Male
  Weight: 65 kg

DRUGS (17)
  1. REMICADE [Suspect]
     Indication: RHEUMATOID ARTHRITIS
     Route: 042
  2. ATENOL [Concomitant]
  3. CYCLOBENZAPRINE [Concomitant]
  4. APO-PREDNISONE [Concomitant]
  5. CALCIUM [Concomitant]
  6. APO-MISOPROSTOL [Concomitant]
  7. ASPIRIN [Concomitant]
  8. CRESTOR [Concomitant]
  9. ZYPREXA [Concomitant]
  10. NOVO ALENDRONATE [Concomitant]
  11. NITRAZEPAM [Concomitant]
  12. EZETROL [Concomitant]
  13. PANTOPRAZOLE [Concomitant]
  14. ASPIRIN [Concomitant]
  15. BISOPROLOL [Concomitant]
  16. COUMADIN [Concomitant]
  17. PLAVIX [Concomitant]

REACTIONS (1)
  - CORONARY ARTERY OCCLUSION [None]
